FAERS Safety Report 16064565 (Version 1)
Quarter: 2019Q1

REPORT INFORMATION
  Report Type: Report from Study
  Country: US (occurrence: US)
  Receive Date: 20190312
  Receipt Date: 20190312
  Transmission Date: 20190418
  Serious: Yes (Hospitalization)
  Sender: FDA-Public Use
  Company Number: US-ACTELION-A-US2017-164632

PATIENT
  Age: 60 Year
  Sex: Female

DRUGS (1)
  1. OPSUMIT [Suspect]
     Active Substance: MACITENTAN
     Indication: PULMONARY ARTERIAL HYPERTENSION
     Dosage: 10 MG, QD
     Route: 048
     Dates: start: 20171122

REACTIONS (8)
  - Hospitalisation [Not Recovered/Not Resolved]
  - Compression fracture [Unknown]
  - Blood potassium decreased [Unknown]
  - Bronchitis [Unknown]
  - Osteoporosis [Not Recovered/Not Resolved]
  - Blood magnesium decreased [Unknown]
  - Back pain [Unknown]
  - Chest discomfort [Unknown]

NARRATIVE: CASE EVENT DATE: 20180314
